FAERS Safety Report 20542923 (Version 1)
Quarter: 2022Q1

REPORT INFORMATION
  Report Type: Spontaneous
  Country: US (occurrence: US)
  Receive Date: 20220302
  Receipt Date: 20220302
  Transmission Date: 20220423
  Serious: No
  Sender: FDA-Public Use
  Company Number: US-PERRIGO-21US024700

PATIENT
  Sex: Male
  Weight: 77.098 kg

DRUGS (3)
  1. SCOPOLAMINE [Suspect]
     Active Substance: SCOPOLAMINE
     Indication: Motion sickness
     Dosage: UNKNOWN, SINGLE
     Route: 047
     Dates: start: 20210907, end: 20210907
  2. SCOPOLAMINE [Suspect]
     Active Substance: SCOPOLAMINE
     Dosage: 1 MG, PRN
     Route: 062
     Dates: start: 2019, end: 20210907
  3. IBUPROFEN [Concomitant]
     Active Substance: IBUPROFEN
     Indication: Headache
     Dosage: UNKNOWN, PRN
     Route: 065

REACTIONS (4)
  - Mydriasis [Recovering/Resolving]
  - Vision blurred [Recovered/Resolved]
  - Exposure via eye contact [Recovered/Resolved]
  - Product administered to patient of inappropriate age [Recovered/Resolved]

NARRATIVE: CASE EVENT DATE: 20190101
